FAERS Safety Report 17831016 (Version 1)
Quarter: 2020Q2

REPORT INFORMATION
  Report Type: Spontaneous
  Country: US (occurrence: US)
  Receive Date: 20200527
  Receipt Date: 20200527
  Transmission Date: 20200714
  Serious: No
  Sender: FDA-Public Use
  Company Number: US-TEVA-2020-US-1240124

PATIENT
  Sex: Female
  Weight: 83.91 kg

DRUGS (4)
  1. METRONIDAZOLE TEVA [Suspect]
     Active Substance: METRONIDAZOLE
     Indication: PARASITIC GASTROENTERITIS
     Dosage: 750 MILLIGRAM DAILY;
     Route: 065
     Dates: start: 20200512
  2. DULERA [Concomitant]
     Active Substance: FORMOTEROL FUMARATE DIHYDRATE\MOMETASONE FUROATE
     Indication: ASTHMA
  3. SINGULAIR [Concomitant]
     Active Substance: MONTELUKAST SODIUM
  4. SPIRIVA [Concomitant]
     Active Substance: TIOTROPIUM BROMIDE MONOHYDRATE

REACTIONS (4)
  - Tendon injury [Unknown]
  - Pain in extremity [Unknown]
  - Peripheral swelling [Unknown]
  - Hypokinesia [Unknown]
